FAERS Safety Report 5006531-8 (Version None)
Quarter: 2006Q2

REPORT INFORMATION
  Report Type: 
  Country: None (occurrence: None)
  Receive Date: 20060516
  Receipt Date: 20060508
  Transmission Date: 20061013
  Serious: Yes (Hospitalization, Other)
  Sender: FDA-Public Use
  Company Number: DE200605001943

PATIENT
  Age: 65 Year
  Sex: Male

DRUGS (8)
  1. GEMZAR [Suspect]
     Indication: PANCREATIC CARCINOMA
     Dosage: 1000 MG/M2, DAILY (1/D), INTRAVENOUS
     Route: 042
     Dates: start: 20060101
  2. ANTIHYPERTENSIVES [Concomitant]
  3. RAMIPRIL [Concomitant]
  4. HCT (HYDROCHLOROTHIAZIDE) [Concomitant]
  5. METOPROLOL SUCCINATE [Concomitant]
  6. ALDACTONE [Concomitant]
  7. DOXAZOSIN (DOXAZOSIN) [Concomitant]
  8. NORVASC [Concomitant]

REACTIONS (8)
  - ANAEMIA [None]
  - BLOOD CREATININE INCREASED [None]
  - BLOOD LACTATE DEHYDROGENASE INCREASED [None]
  - GASTRIC HAEMORRHAGE [None]
  - HAEMOLYSIS [None]
  - HYPERTENSIVE CRISIS [None]
  - PLATELET COUNT DECREASED [None]
  - PULMONARY OEDEMA [None]
